FAERS Safety Report 9003266 (Version 1)
Quarter: 2013Q1

REPORT INFORMATION
  Report Type: Spontaneous
  Country: IT (occurrence: IT)
  Receive Date: 20130108
  Receipt Date: 20130108
  Transmission Date: 20140127
  Serious: Yes (Other)
  Sender: FDA-Public Use
  Company Number: IT-BAXTER-2013BAX000189

PATIENT
  Age: 32 Year
  Sex: Female
  Weight: 63 kg

DRUGS (6)
  1. ENDOXAN BAXTER [Suspect]
     Indication: BREAST CANCER
     Route: 042
     Dates: start: 20121121, end: 20121121
  2. DOCETAXEL [Suspect]
     Indication: BREAST CANCER
     Route: 042
     Dates: start: 20121121, end: 20121121
  3. FARMORUBICINA [Suspect]
     Indication: BREAST CANCER
     Route: 042
     Dates: start: 20121121, end: 20121121
  4. ONDANSETRON [Concomitant]
     Indication: BREAST CANCER
     Route: 042
     Dates: start: 20121121, end: 20121121
  5. SOLDESAM [Concomitant]
     Indication: BREAST CANCER
     Route: 042
     Dates: start: 20121121, end: 20121121
  6. RANIDIL [Concomitant]
     Indication: BREAST CANCER
     Route: 042
     Dates: start: 20121121, end: 20121121

REACTIONS (7)
  - Abdominal pain [Recovering/Resolving]
  - Bone pain [Recovering/Resolving]
  - Headache [Recovering/Resolving]
  - Conjunctivitis [Recovering/Resolving]
  - Tachycardia [Recovering/Resolving]
  - Lymphadenitis [Recovering/Resolving]
  - Oesophageal pain [Unknown]
